FAERS Safety Report 7778037-4 (Version None)
Quarter: 2011Q3

REPORT INFORMATION
  Report Type: 
  Country: None (occurrence: None)
  Receive Date: 20110926
  Receipt Date: 20110920
  Transmission Date: 20111222
  Serious: Yes (Hospitalization, Other)
  Sender: FDA-Public Use
  Company Number: JP-BAYER-200912092BYL

PATIENT
  Age: 48 Year
  Sex: Male
  Weight: 105 kg

DRUGS (12)
  1. NEXAVAR [Suspect]
     Dosage: 200 MG (DAILY DOSE), QOD, ORAL
     Route: 048
     Dates: start: 20090701, end: 20090713
  2. PREDNISOLONE [Concomitant]
     Indication: PROPHYLAXIS
     Dosage: 20 MG (DAILY DOSE), , ORAL
     Route: 048
     Dates: start: 20090701
  3. NEXAVAR [Suspect]
     Dosage: 200 MG (DAILY DOSE), , ORAL
     Route: 048
     Dates: start: 20090714, end: 20100207
  4. LIPITOR [Concomitant]
     Dosage: 10 MG (DAILY DOSE), , ORAL
     Route: 048
     Dates: start: 20050721
  5. NEXAVAR [Suspect]
     Indication: RENAL CELL CARCINOMA
     Route: 048
     Dates: start: 20090518, end: 20090529
  6. DIOVAN [Concomitant]
     Dosage: 40 MG (DAILY DOSE), , ORAL
     Route: 048
     Dates: start: 20050721
  7. TAGAMET [Concomitant]
     Dosage: 400 MG (DAILY DOSE), , ORAL
     Route: 048
     Dates: start: 20090210
  8. PROHEPARUM [Concomitant]
     Dosage: 3 DF (DAILY DOSE), , ORAL
     Route: 048
     Dates: start: 20090518
  9. NEXAVAR [Suspect]
     Dosage: 400 MG (DAILY DOSE), , ORAL
     Route: 048
     Dates: start: 20100208
  10. NEXAVAR [Suspect]
     Dosage: 200 MG (DAILY DOSE), , ORAL
     Route: 048
     Dates: start: 20090609, end: 20090623
  11. OIF [Concomitant]
     Dosage: 5 MIU (DAILY DOSE), BIW, INTRAVENOUS
     Route: 042
     Dates: start: 20090219
  12. URSO 250 [Concomitant]
     Dosage: 150 MG (DAILY DOSE), , ORAL
     Route: 048
     Dates: start: 20090515

REACTIONS (11)
  - HYPERAESTHESIA [None]
  - THROMBOCYTOPENIA [None]
  - ERYTHEMA MULTIFORME [None]
  - BLOOD CREATININE INCREASED [None]
  - HEPATIC FUNCTION ABNORMAL [None]
  - PALMAR-PLANTAR ERYTHRODYSAESTHESIA SYNDROME [None]
  - RENAL IMPAIRMENT [None]
  - STOMATITIS [None]
  - MALAISE [None]
  - HYPERURICAEMIA [None]
  - PYREXIA [None]
